FAERS Safety Report 8966613 (Version 3)
Quarter: 2013Q1

REPORT INFORMATION
  Report Type: Spontaneous
  Country: US (occurrence: US)
  Receive Date: 20121217
  Receipt Date: 20130325
  Transmission Date: 20140127
  Serious: No
  Sender: FDA-Public Use
  Company Number: US-PFIZER INC-2012318409

PATIENT
  Age: 29 Year
  Sex: Female
  Weight: 49.89 kg

DRUGS (10)
  1. PRISTIQ [Suspect]
     Indication: ANXIETY
     Dosage: UNK
     Dates: start: 2006, end: 2007
  2. PRISTIQ [Suspect]
     Indication: DEPRESSION
     Dosage: 50 MG, DAILY
     Dates: start: 2010, end: 2012
  3. PRISTIQ [Suspect]
     Dosage: 50 MG, 2X/DAY
     Dates: start: 2012
  4. PRISTIQ [Suspect]
     Dosage: 100 MG, 2X/DAY
  5. XANAX [Suspect]
     Indication: PANIC ATTACK
     Dosage: UNK, AS NEEDED
     Dates: start: 2001, end: 201212
  6. XANAX [Suspect]
     Indication: ANXIETY
  7. PAXIL [Suspect]
     Indication: DEPRESSION
     Dosage: UNK
  8. PAXIL [Suspect]
     Indication: ANXIETY
  9. KLONOPIN [Suspect]
     Indication: WITHDRAWAL SYNDROME
     Dosage: UNK
  10. ADDERALL [Concomitant]
     Dosage: UNK

REACTIONS (11)
  - Inappropriate schedule of drug administration [Unknown]
  - Withdrawal syndrome [Not Recovered/Not Resolved]
  - Activities of daily living impaired [Recovered/Resolved]
  - Malaise [Recovered/Resolved]
  - Vertigo [Recovered/Resolved]
  - Feeling abnormal [Recovered/Resolved]
  - Nausea [Recovered/Resolved]
  - Hyperhidrosis [Recovered/Resolved]
  - Dizziness [Recovered/Resolved]
  - Muscle spasms [Recovered/Resolved]
  - Anxiety [Unknown]
